FAERS Safety Report 14545875 (Version 2)
Quarter: 2018Q1

REPORT INFORMATION
  Report Type: Report from Study
  Country: CA (occurrence: CA)
  Receive Date: 20180219
  Receipt Date: 20180228
  Transmission Date: 20180509
  Serious: Yes (Hospitalization, Other)
  Sender: FDA-Public Use
  Company Number: CA-ROCHE-2070823

PATIENT
  Sex: Female

DRUGS (6)
  1. LEVOFLOXACIN. [Concomitant]
     Active Substance: LEVOFLOXACIN
     Route: 065
  2. ELEVAL [Concomitant]
  3. RABEPRAZOLE [Concomitant]
     Active Substance: RABEPRAZOLE
  4. RITUXAN [Suspect]
     Active Substance: RITUXIMAB
     Indication: IMMUNE THROMBOCYTOPENIC PURPURA
     Route: 042
     Dates: start: 20180126
  5. URSODIOL. [Concomitant]
     Active Substance: URSODIOL
  6. PREDNISONE. [Concomitant]
     Active Substance: PREDNISONE
     Route: 065

REACTIONS (3)
  - Respiratory tract infection viral [Unknown]
  - Asthma [Unknown]
  - Platelet count decreased [Unknown]
